FAERS Safety Report 8947713 (Version 1)
Quarter: 2012Q4

REPORT INFORMATION
  Report Type: Spontaneous
  Country: JP (occurrence: None)
  Receive Date: 20121127
  Receipt Date: 20121127
  Transmission Date: 20130627
  Serious: Yes (Other)
  Sender: FDA-Public Use
  Company Number: DSA_60972_2012

PATIENT
  Age: 68 Year
  Sex: Male

DRUGS (3)
  1. FLUOROURACIL (FLUOROURACIL) [Suspect]
     Indication: OROPHARYNGEAL CANCER STAGE UNSPECIFIED
     Dosage: 750 mg/m2; every three weeks
7 weeks 5 days until not continuing
  2. CISPLATIN [Suspect]
     Indication: OROPHARYNGEAL CANCER STAGE UNSPECIFIED
     Dosage: 75 mg/m2; every 3 weeks
7 weeks 5 days until not continuing
  3. DOCETAXEL [Suspect]
     Indication: OROPHARYNGEAL CANCER STAGE UNSPECIFIED
     Dosage: 60 mg/m2; every 3 weeks 
7 weeks 5 days until not continuing

REACTIONS (1)
  - Decreased appetite [None]
